FAERS Safety Report 8822041 (Version 2)
Quarter: 2012Q4

REPORT INFORMATION
  Report Type: 
  Country: FR (occurrence: FR)
  Receive Date: 20121003
  Receipt Date: 20121116
  Transmission Date: 20130627
  Serious: Yes (Hospitalization, Other)
  Sender: FDA-Public Use
  Company Number: FR-AMGEN-FRASP2012061700

PATIENT
  Age: 67 Year
  Sex: Female
  Weight: 69 kg

DRUGS (4)
  1. ENBREL [Suspect]
     Indication: ANKYLOSING SPONDYLITIS
     Dosage: 50 mg, weekly
     Route: 058
     Dates: start: 20050923, end: 201206
  2. ENBREL [Suspect]
     Indication: PSORIASIS
  3. METOJECT [Concomitant]
     Indication: ANKYLOSING SPONDYLITIS
     Dosage: 20 mg, weekly
     Route: 058
     Dates: start: 20040916, end: 201206
  4. VOLTARENE                          /00372302/ [Concomitant]
     Dosage: 1 DF, 1x/day
     Dates: start: 20111014

REACTIONS (1)
  - Carcinoid tumour pulmonary [Not Recovered/Not Resolved]
